FAERS Safety Report 25191302 (Version 3)
Quarter: 2025Q3

REPORT INFORMATION
  Report Type: Spontaneous
  Country: EU (occurrence: EU)
  Receive Date: 20250411
  Receipt Date: 20250917
  Transmission Date: 20251021
  Serious: Yes (Hospitalization, Other)
  Sender: VERITY PHARMACEUTICALS INC.
  Company Number: EU-VER-202500001

PATIENT
  Age: 17 Year
  Sex: Male

DRUGS (4)
  1. TRIPTORELIN PAMOATE [Suspect]
     Active Substance: TRIPTORELIN PAMOATE
     Indication: Libido increased
     Dosage: POWDER AND SOLVENT FOR SUSPENSION FOR INJECTION,??1 DOS VAR 3E VECKA
     Route: 065
     Dates: start: 20240426, end: 20240813
  2. TRIPTORELIN PAMOATE [Suspect]
     Active Substance: TRIPTORELIN PAMOATE
     Indication: Paedophilia
     Dosage: POWDER AND SOLVENT FOR SUSPENSION FOR INJECTION,??1 DOS VAR 3E VECKA
     Route: 065
     Dates: start: 20240426, end: 20240813
  3. TRIPTORELIN PAMOATE [Suspect]
     Active Substance: TRIPTORELIN PAMOATE
     Indication: Off label use
     Dosage: POWDER AND SOLVENT FOR SUSPENSION FOR INJECTION,??1 DOS VAR 3E VECKA
     Route: 065
     Dates: start: 20240426, end: 20240813
  4. LISDEXAMFETAMINE DIMESYLATE [Suspect]
     Active Substance: LISDEXAMFETAMINE DIMESYLATE
     Indication: Product used for unknown indication
     Route: 065
     Dates: start: 20240614

REACTIONS (2)
  - Cerebral haemorrhage [Recovered/Resolved with Sequelae]
  - Off label use [Unknown]

NARRATIVE: CASE EVENT DATE: 20240501
